FAERS Safety Report 6892568-0 (Version None)
Quarter: 2010Q3

REPORT INFORMATION
  Report Type: 
  Country: None (occurrence: None)
  Receive Date: 20100731
  Receipt Date: 20080716
  Transmission Date: 20110219
  Serious: No
  Sender: FDA-Public Use
  Company Number: US-PFIZER INC-2008060420

PATIENT
  Sex: Female
  Weight: 50 kg

DRUGS (4)
  1. NEURONTIN [Suspect]
     Indication: TRIGEMINAL NEURALGIA
  2. LYRICA [Suspect]
     Indication: TRIGEMINAL NEURALGIA
     Dates: start: 20080701
  3. TEGRETOL [Concomitant]
  4. ACETAMINOPHEN [Concomitant]

REACTIONS (4)
  - CONFUSIONAL STATE [None]
  - HEADACHE [None]
  - OEDEMA PERIPHERAL [None]
  - VISION BLURRED [None]
